FAERS Safety Report 14343607 (Version 4)
Quarter: 2018Q1

REPORT INFORMATION
  Report Type: Spontaneous
  Country: PL (occurrence: PL)
  Receive Date: 20180102
  Receipt Date: 20180216
  Transmission Date: 20180509
  Serious: Yes (Death)
  Sender: FDA-Public Use
  Company Number: PL-PFIZER INC-2017553977

PATIENT
  Age: 67 Year
  Sex: Female

DRUGS (7)
  1. GEMCITABINE HYDROCHLORIDE. [Suspect]
     Active Substance: GEMCITABINE HYDROCHLORIDE
     Indication: GALLBLADDER CANCER METASTATIC
     Dosage: 1000 MG/M2, ON DAY 1 AND 8
     Route: 042
  2. CISPLATIN. [Suspect]
     Active Substance: CISPLATIN
     Indication: GALLBLADDER CANCER METASTATIC
     Dosage: 25 MG/M2, CYCLIC ( ON DAY 1, EVERY 21 DAYS)
  3. FENTANYL. [Concomitant]
     Active Substance: FENTANYL
     Dosage: 50 G, DAILY, PATCH (50 G/DAY EVERY 3 DAYS)
  4. LOW MOLECULAR WEIGHT HEPARIN [Concomitant]
     Active Substance: UNSPECIFIED INGREDIENT
     Dosage: 60 MG, 1X/DAY
     Route: 058
  5. ACETAMINOPHEN. [Concomitant]
     Active Substance: ACETAMINOPHEN
     Dosage: 500 MG, 3X/DAY
     Route: 048
  6. ENALAPRIL [Concomitant]
     Active Substance: ENALAPRIL
     Indication: HYPERTENSION
     Dosage: 5 MG, 2X/DAY
  7. MORPHINE [Concomitant]
     Active Substance: MORPHINE
     Dosage: 20 MG, DAILY

REACTIONS (8)
  - Leukopenia [Fatal]
  - Abdominal pain upper [Fatal]
  - Neutropenia [Fatal]
  - Hypotension [Fatal]
  - Anaemia [Fatal]
  - Liver function test increased [Fatal]
  - Asthenia [Fatal]
  - Cardiopulmonary failure [Fatal]
